FAERS Safety Report 4360676-4 (Version None)
Quarter: 2004Q2

REPORT INFORMATION
  Report Type: 
  Country: None (occurrence: None)
  Receive Date: 20040519
  Receipt Date: 20040519
  Transmission Date: 20050107
  Serious: Yes (Hospitalization)
  Sender: FDA-Public Use
  Company Number: None

PATIENT
  Age: 70 Year
  Sex: Male

DRUGS (2)
  1. OMEPRAZOLE [Suspect]
     Indication: GASTROINTESTINAL DISORDER
     Dosage: 70 MG PO QD
     Route: 048
     Dates: start: 20040204, end: 20040208
  2. OMEPRAZOLE [Suspect]
     Indication: PROPHYLAXIS
     Dosage: 70 MG PO QD
     Route: 048
     Dates: start: 20040204, end: 20040208

REACTIONS (1)
  - PANCREATITIS [None]
